FAERS Safety Report 23481538 (Version 3)
Quarter: 2024Q4

REPORT INFORMATION
  Report Type: Spontaneous
  Country: JP (occurrence: JP)
  Receive Date: 20240205
  Receipt Date: 20241017
  Transmission Date: 20250114
  Serious: No
  Sender: ROCHE
  Company Number: JP-CHUGAI-2023042692

PATIENT
  Sex: Male

DRUGS (1)
  1. HEMLIBRA [Suspect]
     Active Substance: EMICIZUMAB-KXWH
     Indication: Haemophilia A with anti factor VIII
     Dosage: 150 MILLIGRAM, ONCE/2WEEKS
     Route: 058
     Dates: start: 20200124

REACTIONS (2)
  - Fall [Unknown]
  - Skin mass [Not Recovered/Not Resolved]
